FAERS Safety Report 4983378-X (Version None)
Quarter: 2006Q2

REPORT INFORMATION
  Report Type: 
  Country: None (occurrence: None)
  Receive Date: 20060426
  Receipt Date: 20050926
  Transmission Date: 20061013
  Serious: Yes (Hospitalization, Disabling)
  Sender: FDA-Public Use
  Company Number: US-MERCK-0509USA03981

PATIENT
  Age: 55 Year
  Sex: Male
  Weight: 120 kg

DRUGS (1)
  1. VIOXX [Suspect]
     Indication: GOUT
     Route: 048

REACTIONS (4)
  - CEREBROVASCULAR ACCIDENT [None]
  - DEHYDRATION [None]
  - INJURY [None]
  - MYOCARDIAL INFARCTION [None]
